FAERS Safety Report 4740584-7 (Version None)
Quarter: 2005Q3

REPORT INFORMATION
  Report Type: 
  Country: None (occurrence: None)
  Receive Date: 20050729
  Receipt Date: 20050426
  Transmission Date: 20060218
  Serious: Yes (Hospitalization)
  Sender: FDA-Public Use
  Company Number: US-2004-035926

PATIENT
  Age: 66 Year
  Sex: Female
  Weight: 65.8 kg

DRUGS (1)
  1. MAGNEVIST [Suspect]
     Indication: NUCLEAR MAGNETIC RESONANCE IMAGING
     Dosage: 20 ML, 1 DOSE, INTRAVENOUS
     Route: 042
     Dates: start: 20040920, end: 20040920

REACTIONS (4)
  - AGGRESSION [None]
  - HYPERHIDROSIS [None]
  - MUSCLE TWITCHING [None]
  - UNRESPONSIVE TO VERBAL STIMULI [None]
